FAERS Safety Report 7196719 (Version 4)
Quarter: 2013Q4

REPORT INFORMATION
  Report Type: Spontaneous
  Country: US (occurrence: US)
  Receive Date: 20091202
  Receipt Date: 20131230
  Transmission Date: 20140711
  Serious: Yes (Hospitalization, Other)
  Sender: FDA-Public Use
  Company Number: US-BAYER-200941000NA

PATIENT
  Age: 33 Year
  Sex: Female
  Weight: 84 kg

DRUGS (18)
  1. YASMIN [Suspect]
     Indication: MENSTRUAL CYCLE MANAGEMENT
     Dosage: 1 DF (DAILY DOSE), QD, ORAL
     Route: 048
     Dates: start: 2001, end: 2007
  2. YASMIN [Suspect]
     Indication: OVARIAN CYST
  3. CYCLOBENZAPRINE [Concomitant]
     Dosage: UNK
  4. NAPROXEN [Concomitant]
     Dosage: UNK
  5. CIPROFLOXACIN [Concomitant]
     Dosage: UNK
  6. FLUOXETINE [Concomitant]
     Dosage: UNK
  7. PREMARIN [ESTROGENS CONJUGATED] [Concomitant]
     Dosage: UNK
  8. IBUPROFEN [IBUPROFEN] [Concomitant]
     Dosage: UNK
  9. OXYCODONE/APAP [Concomitant]
     Dosage: UNK
  10. METHYLPREDNISOLONE [METHYLPREDNISOLONE] [Concomitant]
     Dosage: UNK
  11. RANITIDINE [Concomitant]
     Dosage: UNK
  12. HYDROXYZINE [Concomitant]
     Dosage: UNK
  13. AMOXICILLIN [Concomitant]
     Dosage: UNK
  14. EFFEXOR XR [Concomitant]
     Dosage: 37.5 MG, UNK
     Route: 048
  15. LIPITOR [Concomitant]
     Dosage: 20 MG, UNK
     Route: 048
  16. WELLBUTRIN [Concomitant]
     Dosage: 300 MG, UNK
     Route: 048
  17. CYMBALTA [Concomitant]
  18. CALCIUM [Concomitant]

REACTIONS (4)
  - Cholecystectomy [None]
  - Abdominal pain [None]
  - Cholelithiasis [None]
  - Cholecystitis [None]
